FAERS Safety Report 15384723 (Version 5)
Quarter: 2022Q1

REPORT INFORMATION
  Report Type: Other
  Country: CA (occurrence: CA)
  Receive Date: 20180914
  Receipt Date: 20220110
  Transmission Date: 20220424
  Serious: Yes (Hospitalization, Other)
  Sender: FDA-Public Use
  Company Number: CA-002147023-PHHY2017CA155862

PATIENT
  Sex: Male

DRUGS (8)
  1. XOLAIR [Suspect]
     Active Substance: OMALIZUMAB
     Indication: Chronic spontaneous urticaria
     Route: 058
     Dates: start: 20170112
  2. XOLAIR [Suspect]
     Active Substance: OMALIZUMAB
     Route: 058
     Dates: start: 2017
  3. XOLAIR [Suspect]
     Active Substance: OMALIZUMAB
     Route: 058
     Dates: start: 2018
  4. PREDNISONE [Suspect]
     Active Substance: PREDNISONE
     Indication: Urticaria
     Route: 042
  5. ZANTAC [Concomitant]
     Active Substance: RANITIDINE HYDROCHLORIDE
     Indication: Product used for unknown indication
     Route: 048
  6. CETIRIZINE HYDROCHLORIDE [Concomitant]
     Active Substance: CETIRIZINE HYDROCHLORIDE
     Indication: Product used for unknown indication
     Route: 048
  7. IMURAN [Concomitant]
     Active Substance: AZATHIOPRINE
     Indication: Chemotherapy
     Route: 048
  8. EPIVAL (CANADA) [Concomitant]
     Indication: Seizure
     Route: 048

REACTIONS (7)
  - Anaphylactic reaction [Recovered/Resolved]
  - Urticaria [Recovered/Resolved]
  - Rash [Recovered/Resolved]
  - Cataract [Unknown]
  - Stress [Unknown]
  - Viral infection [Unknown]
  - Illness [Unknown]

NARRATIVE: CASE EVENT DATE: 20170101
